FAERS Safety Report 4543529-8 (Version None)
Quarter: 2004Q4

REPORT INFORMATION
  Report Type: 
  Country: None (occurrence: None)
  Receive Date: 20041229
  Receipt Date: 20041229
  Transmission Date: 20050328
  Serious: Yes (Disabling)
  Sender: FDA-Public Use
  Company Number: None

PATIENT
  Age: 48 Year
  Sex: Female
  Weight: 69.8539 kg

DRUGS (1)
  1. ZICAM [Suspect]

REACTIONS (5)
  - AGEUSIA [None]
  - ANOSMIA [None]
  - APPLICATION SITE BURNING [None]
  - APPLICATION SITE PAIN [None]
  - IMPAIRED WORK ABILITY [None]
